FAERS Safety Report 6181828-7 (Version None)
Quarter: 2009Q2

REPORT INFORMATION
  Report Type: 
  Country: None (occurrence: None)
  Receive Date: 20090504
  Receipt Date: 20090421
  Transmission Date: 20091009
  Serious: Yes (Death)
  Sender: FDA-Public Use
  Company Number: 2009AL002503

PATIENT
  Age: 88 Year
  Sex: Female

DRUGS (8)
  1. CITALOPRAM HYDROBROMIDE [Suspect]
     Indication: DEPRESSION
     Dosage: 40 MG; QD; PO
     Route: 048
  2. TEMAZEPAM [Concomitant]
  3. ACETYLSALICYLIC ACID [Concomitant]
  4. RAMIPRIL [Concomitant]
  5. TOLTERODINE [Concomitant]
  6. LATANOPROST [Concomitant]
  7. FOLIC ACID [Concomitant]
  8. TRIMETHOPRIM [Concomitant]

REACTIONS (1)
  - DRUG TOXICITY [None]
